FAERS Safety Report 15073915 (Version 2)
Quarter: 2018Q2

REPORT INFORMATION
  Report Type: Spontaneous
  Country: US (occurrence: US)
  Receive Date: 20180627
  Receipt Date: 20180627
  Transmission Date: 20180711
  Serious: No
  Sender: FDA-Public Use
  Company Number: US-BAYER-2018-120702

PATIENT
  Sex: Male

DRUGS (1)
  1. MIRALAX [Suspect]
     Active Substance: POLYETHYLENE GLYCOL 3350
     Indication: GASTROINTESTINAL DISORDER
     Dosage: UNK UNK, QD(HALF A CAPFUL)
     Route: 065

REACTIONS (4)
  - Product prescribing issue [Unknown]
  - Diarrhoea [Unknown]
  - Product use issue [Unknown]
  - Underdose [Unknown]
